FAERS Safety Report 4918083-9 (Version None)
Quarter: 2006Q1

REPORT INFORMATION
  Report Type: 
  Country: None (occurrence: None)
  Receive Date: 20060221
  Receipt Date: 20051003
  Transmission Date: 20060701
  Serious: Yes (Hospitalization)
  Sender: FDA-Public Use
  Company Number: US-MERCK-0510USA02650

PATIENT
  Age: 66 Year
  Sex: Female
  Weight: 73 kg

DRUGS (12)
  1. VIOXX [Suspect]
     Indication: ARTHRITIS
     Route: 048
     Dates: start: 20010824, end: 20040930
  2. VIOXX [Suspect]
     Indication: BACK PAIN
     Route: 048
     Dates: start: 20010824, end: 20040930
  3. TENORMIN [Concomitant]
     Route: 065
  4. LANTUS [Concomitant]
     Route: 065
  5. PRINIVIL [Concomitant]
     Route: 065
  6. PLAVIX [Concomitant]
     Route: 065
  7. ASPIRIN [Concomitant]
     Route: 065
  8. IMDUR [Concomitant]
     Route: 065
  9. GLUCOVANCE [Concomitant]
     Route: 065
  10. ZOCOR [Concomitant]
     Route: 065
  11. NIASPAN [Concomitant]
     Route: 065
  12. ELAVIL [Concomitant]
     Route: 065

REACTIONS (6)
  - BRADYCARDIA [None]
  - CEREBRAL ARTERY STENOSIS [None]
  - CEREBROVASCULAR DISORDER [None]
  - GALLBLADDER DISORDER [None]
  - HYPERLIPIDAEMIA [None]
  - TRANSIENT ISCHAEMIC ATTACK [None]
